FAERS Safety Report 17564067 (Version 2)
Quarter: 2020Q2

REPORT INFORMATION
  Report Type: Spontaneous
  Country: US (occurrence: US)
  Receive Date: 20200320
  Receipt Date: 20200511
  Transmission Date: 20200713
  Serious: Yes (Other)
  Sender: FDA-Public Use
  Company Number: US-AUROBINDO-AUR-APL-2020-014302

PATIENT
  Age: 21 Year
  Sex: Male

DRUGS (7)
  1. CICLOSPORIN [Suspect]
     Active Substance: CYCLOSPORINE
     Indication: PLATELET COUNT
     Dosage: UNK
     Route: 065
  2. AMINOCAPROIC ACID. [Suspect]
     Active Substance: AMINOCAPROIC ACID
     Indication: PLATELET COUNT
     Dosage: UNK
     Route: 065
  3. ELTROMBOPAG [Suspect]
     Active Substance: ELTROMBOPAG
     Indication: PLATELET COUNT
     Dosage: UNK
     Route: 065
  4. ANTITHYMOCYTE IMMUNOGLOBULIN [Suspect]
     Active Substance: THYMOCYTE IMMUNE GLOBULIN NOS
     Indication: PLATELET COUNT
     Dosage: UNK
     Route: 065
  5. METHYLPREDNISOLONE. [Suspect]
     Active Substance: METHYLPREDNISOLONE
     Indication: PLATELET COUNT
     Dosage: UNK
     Route: 065
  6. IMMUNOGLOBULIN [Concomitant]
     Indication: ANTIBODY TEST ABNORMAL
     Dosage: UNK
     Route: 065
  7. MEROPENEM. [Concomitant]
     Active Substance: MEROPENEM
     Indication: KLEBSIELLA BACTERAEMIA
     Dosage: UNK
     Route: 065

REACTIONS (1)
  - Therapy non-responder [Unknown]
